FAERS Safety Report 4428918-4 (Version None)
Quarter: 2004Q3

REPORT INFORMATION
  Report Type: 
  Country: None (occurrence: None)
  Receive Date: 20040816
  Receipt Date: 20040802
  Transmission Date: 20050211
  Serious: Yes (Other)
  Sender: FDA-Public Use
  Company Number: 2004053004

PATIENT
  Sex: Male

DRUGS (2)
  1. VIAGRA [Suspect]
     Indication: ILL-DEFINED DISORDER
  2. ALL OTHER THERAPEUTICS PRODUCTS (ALL OTHER THERAPEUTICS PRODUCTS) [Suspect]
     Indication: RENAL DISORDER

REACTIONS (2)
  - FALL [None]
  - HYPOTENSION [None]
